FAERS Safety Report 11884504 (Version 4)
Quarter: 2016Q1

REPORT INFORMATION
  Report Type: Spontaneous
  Country: MX (occurrence: MX)
  Receive Date: 20160104
  Receipt Date: 20160321
  Transmission Date: 20160526
  Serious: Yes (Other)
  Sender: FDA-Public Use
  Company Number: MX-ROCHE-1686837

PATIENT
  Age: 79 Year
  Sex: Male
  Weight: 80 kg

DRUGS (1)
  1. AVASTIN [Suspect]
     Active Substance: BEVACIZUMAB
     Indication: AGE-RELATED MACULAR DEGENERATION
     Dosage: UNIQUE DOSE
     Route: 050
     Dates: start: 20151207, end: 20151207

REACTIONS (6)
  - Endophthalmitis [Recovered/Resolved]
  - Suspected counterfeit product [Unknown]
  - Blindness [Recovered/Resolved]
  - Off label use [Unknown]
  - Sepsis [Recovered/Resolved]
  - Suspected transmission of an infectious agent via product [Unknown]

NARRATIVE: CASE EVENT DATE: 20151207
